FAERS Safety Report 18481215 (Version 1)
Quarter: 2020Q4

REPORT INFORMATION
  Report Type: Spontaneous
  Country: CZ (occurrence: CZ)
  Receive Date: 20201109
  Receipt Date: 20201109
  Transmission Date: 20210114
  Serious: Yes (Life-Threatening, Hospitalization, Other)
  Sender: FDA-Public Use
  Company Number: CZ-OXFORD PHARMACEUTICALS, LLC-2020OXF00139

PATIENT
  Age: 68 Year
  Sex: Female

DRUGS (2)
  1. TRAZODONE [Suspect]
     Active Substance: TRAZODONE HYDROCHLORIDE
     Dosage: 150 MG IN THE EVENING
     Route: 048
  2. TRAZODONE [Suspect]
     Active Substance: TRAZODONE HYDROCHLORIDE
     Indication: SUICIDE ATTEMPT
     Dosage: 1500 MG, ONCE
     Route: 048

REACTIONS (3)
  - Loss of consciousness [Recovered/Resolved]
  - Compartment syndrome [Recovering/Resolving]
  - Suicide attempt [Recovered/Resolved]
